FAERS Safety Report 18529267 (Version 1)
Quarter: 2020Q4

REPORT INFORMATION
  Report Type: Report from Study
  Country: None (occurrence: US)
  Receive Date: 20201121
  Receipt Date: 20201121
  Transmission Date: 20210114
  Serious: Yes (Other)
  Sender: FDA-Public Use
  Company Number: US-ABBVIE-20K-163-3645223-00

PATIENT
  Sex: Female

DRUGS (2)
  1. HUMIRA [Suspect]
     Active Substance: ADALIMUMAB
     Indication: PRODUCT USED FOR UNKNOWN INDICATION
     Route: 058
     Dates: start: 2016, end: 2020
  2. HUMIRA [Suspect]
     Active Substance: ADALIMUMAB
     Route: 058
     Dates: start: 2020

REACTIONS (9)
  - Maternal exposure during pregnancy [Unknown]
  - Pain [Recovering/Resolving]
  - Placenta praevia [Recovered/Resolved]
  - Inappropriate schedule of product administration [Recovered/Resolved]
  - Overweight [Recovered/Resolved]
  - Stress [Recovering/Resolving]
  - Drug ineffective [Recovering/Resolving]
  - Live birth [Unknown]
  - Unevaluable event [Unknown]
